FAERS Safety Report 10432462 (Version 1)
Quarter: 2014Q3

REPORT INFORMATION
  Report Type: Spontaneous
  Country: US (occurrence: None)
  Receive Date: 20140815
  Receipt Date: 20140815
  Transmission Date: 20150326
  Serious: No
  Sender: FDA-Public Use
  Company Number: A-US2014-099913

PATIENT
  Age: 25 Year
  Sex: Male

DRUGS (4)
  1. ADCIRCA [Concomitant]
     Active Substance: TADALAFIL
  2. OPSUMIT [Suspect]
     Active Substance: MACITENTAN
     Indication: PULMONARY ARTERIAL HYPERTENSION
     Route: 048
     Dates: start: 20140513
  3. REMODULIN (TREPROSTINIL SODIUM) [Concomitant]
     Active Substance: TREPROSTINIL
  4. FLOLAN (EPOPROSTENOL SODIUM) [Concomitant]

REACTIONS (1)
  - Infusion site pain [None]
